FAERS Safety Report 8524530-6 (Version None)
Quarter: 2012Q3

REPORT INFORMATION
  Report Type: 
  Country: None (occurrence: None)
  Receive Date: 20120720
  Receipt Date: 20120203
  Transmission Date: 20120928
  Serious: Yes (Death)
  Sender: FDA-Public Use
  Company Number: US-MYLANLABS-2012S1002690

PATIENT
  Age: 39 Year
  Sex: Male

DRUGS (3)
  1. FENTANYL [Suspect]
  2. ALPRAZOLAM [Suspect]
  3. VENLAFAXINE [Suspect]

REACTIONS (1)
  - OVERDOSE [None]
